FAERS Safety Report 9621369 (Version 1)
Quarter: 2013Q4

REPORT INFORMATION
  Report Type: Spontaneous
  Country: US (occurrence: None)
  Receive Date: 20131011
  Receipt Date: 20131011
  Transmission Date: 20140711
  Serious: Yes (Hospitalization)
  Sender: FDA-Public Use
  Company Number: None

PATIENT
  Age: 82 Year
  Sex: Male
  Weight: 58.06 kg

DRUGS (4)
  1. FLUOROURACIL [Suspect]
  2. LEUCOVORIN [Suspect]
  3. OXALIPLATIN [Suspect]
  4. ABRAXANE [Suspect]

REACTIONS (2)
  - Jaundice cholestatic [None]
  - Device occlusion [None]
